FAERS Safety Report 6772505-X (Version None)
Quarter: 2010Q2

REPORT INFORMATION
  Report Type: 
  Country: None (occurrence: None)
  Receive Date: 20100616
  Receipt Date: 20090812
  Transmission Date: 20101027
  Serious: No
  Sender: FDA-Public Use
  Company Number: US-ASTRAZENECA-2009SE07801

PATIENT
  Age: 27660 Day
  Sex: Female

DRUGS (6)
  1. PULMICORT RESPULES [Suspect]
     Dosage: 0.25 MG/ML BID DAILY
     Route: 055
     Dates: start: 20090807, end: 20090808
  2. TOPROL-XL [Concomitant]
  3. BENICAR [Concomitant]
  4. FUROSEMIDE [Concomitant]
  5. XANAX [Concomitant]
  6. SINGULAIR [Concomitant]

REACTIONS (4)
  - ANXIETY [None]
  - CRYING [None]
  - DEPRESSED MOOD [None]
  - VOMITING [None]
